FAERS Safety Report 6120684-X (Version None)
Quarter: 2009Q1

REPORT INFORMATION
  Report Type: 
  Country: None (occurrence: None)
  Receive Date: 20090312
  Receipt Date: 20090312
  Transmission Date: 20090719
  Serious: Yes (Hospitalization)
  Sender: FDA-Public Use
  Company Number: None

PATIENT
  Age: 72 Year
  Sex: Female
  Weight: 82 kg

DRUGS (1)
  1. GLEEVEC [Suspect]
     Indication: CHRONIC MYELOID LEUKAEMIA
     Dosage: 400 MG DAILY PO SEVERAL WEEKS
     Route: 048

REACTIONS (5)
  - DEHYDRATION [None]
  - DIALYSIS [None]
  - LETHARGY [None]
  - PYREXIA [None]
  - RENAL FAILURE ACUTE [None]
